FAERS Safety Report 20950759 (Version 1)
Quarter: 2022Q2

REPORT INFORMATION
  Report Type: Report from Study
  Country: CA (occurrence: CA)
  Receive Date: 20220613
  Receipt Date: 20220613
  Transmission Date: 20220721
  Serious: Yes (Death, Other)
  Sender: FDA-Public Use
  Company Number: CA-BAYER-2022A081621

PATIENT
  Sex: Male

DRUGS (1)
  1. EYLEA [Suspect]
     Active Substance: AFLIBERCEPT
     Indication: Age-related macular degeneration
     Dosage: INJECTION EVERY 4-8 WEEKS; SOLUTION FOR INJECTION
     Route: 031
     Dates: start: 20180511

REACTIONS (1)
  - Death [Fatal]

NARRATIVE: CASE EVENT DATE: 20200609
